FAERS Safety Report 24604266 (Version 1)
Quarter: 2024Q4

REPORT INFORMATION
  Report Type: Spontaneous
  Country: US (occurrence: None)
  Receive Date: 20241110
  Receipt Date: 20241110
  Transmission Date: 20250114
  Serious: Yes (Other)
  Sender: Public
  Company Number: None

PATIENT
  Age: 43 Year
  Sex: Male
  Weight: 70.76 kg

DRUGS (1)
  1. QUETIAPINE [Suspect]
     Active Substance: QUETIAPINE
     Dosage: FREQUENCY : DAILY;?
     Route: 048

REACTIONS (5)
  - Heart rate increased [None]
  - Anxiety [None]
  - Neck pain [None]
  - Headache [None]
  - Pain [None]

NARRATIVE: CASE EVENT DATE: 20240828
